FAERS Safety Report 10700678 (Version 1)
Quarter: 2014Q4

REPORT INFORMATION
  Report Type: Spontaneous
  Country: US (occurrence: None)
  Receive Date: 20141224
  Receipt Date: 20141224
  Transmission Date: 20150529
  Serious: Yes (Other)
  Sender: FDA-Public Use
  Company Number: PHEH2014US011896

PATIENT
  Age: 48 Year
  Sex: Female

DRUGS (28)
  1. FLEXERIL [Concomitant]
     Active Substance: CYCLOBENZAPRINE HYDROCHLORIDE
  2. LIPITOR [Concomitant]
     Active Substance: ATORVASTATIN CALCIUM
  3. CLONAZEPAM. [Concomitant]
     Active Substance: CLONAZEPAM
  4. MULTIVITAMIN (ASCORBIC ACID, CALCIUM PANTOTHENATE, ERGOCALCIFEROL NICOTINAMIDE, PYRIDOXINE HYDROCHLORIDE, RETINOL, RIBOFLAVIN, THIAMINE HYDROCHLORIDE) [Concomitant]
  5. CHONDROITIN SULFATE (BOVINE)\DIMETHYL SULFONE\GLUCOSAMINE SULFATE [Concomitant]
     Active Substance: CHONDROITIN SULFATE (BOVINE)\DIMETHYL SULFONE\GLUCOSAMINE SULFATE
  6. SERTRALINE HYDROCHLORIDE. [Concomitant]
     Active Substance: SERTRALINE HYDROCHLORIDE
  7. COQ10 (UBIDECARENONE) [Concomitant]
     Active Substance: UBIDECARENONE
  8. D3 (COLECALCIFEROL) [Concomitant]
  9. VITAMIN E [Concomitant]
     Active Substance: .ALPHA.-TOCOPHEROL
  10. BUPROPION [Concomitant]
     Active Substance: BUPROPION
  11. SAVELLA [Concomitant]
     Active Substance: MILNACIPRAN HYDROCHLORIDE
  12. FLONASE [Concomitant]
     Active Substance: FLUTICASONE PROPIONATE
  13. ZYRTEC [Concomitant]
     Active Substance: CETIRIZINE HYDROCHLORIDE
  14. CALCIUM +D3 (CALCIUM CARBONATE, COLECALCIFEROL) [Concomitant]
  15. ABILIFY [Concomitant]
     Active Substance: ARIPIPRAZOLE
  16. LEVOTHYROXINE [Concomitant]
     Active Substance: LEVOTHYROXINE
  17. ATENOLOL. [Concomitant]
     Active Substance: ATENOLOL
  18. GABAPENTIN. [Concomitant]
     Active Substance: GABAPENTIN
  19. METFORMIN [Concomitant]
     Active Substance: METFORMIN HYDROCHLORIDE
  20. ASPIRIN. [Concomitant]
     Active Substance: ASPIRIN
  21. ZOLADEX [Suspect]
     Active Substance: GOSERELIN ACETATE
     Dosage: UKN, UKN, EVERY 28 DAYS, INJECTION NOS
     Dates: start: 201311
  22. DICLOFENAC SODIUM. [Concomitant]
     Active Substance: DICLOFENAC SODIUM
  23. XGEVA [Suspect]
     Active Substance: DENOSUMAB
     Dosage: UNK, EVERY 28 DAYS, INJECTION NOS
     Dates: start: 201311
  24. TRIAMTERENE. [Concomitant]
     Active Substance: TRIAMTERENE
  25. MAGNESIUM [Concomitant]
     Active Substance: MAGNESIUM
  26. BIOTIN [Concomitant]
     Active Substance: BIOTIN
  27. FEMARA [Suspect]
     Active Substance: LETROZOLE
     Indication: BREAST CANCER
     Route: 048
     Dates: start: 20131211, end: 20140605
  28. VITAMIN B-6 (PYRIDOXINE HYDROCHLORIDE) [Concomitant]

REACTIONS (3)
  - Transient ischaemic attack [None]
  - Aphasia [None]
  - Dysarthria [None]

NARRATIVE: CASE EVENT DATE: 20140605
